FAERS Safety Report 18468058 (Version 1)
Quarter: 2020Q4

REPORT INFORMATION
  Report Type: Spontaneous
  Country: NL (occurrence: IT)
  Receive Date: 20201105
  Receipt Date: 20201105
  Transmission Date: 20210114
  Serious: Yes (Hospitalization)
  Sender: FDA-Public Use
  Company Number: IT-FRESENIUS KABI-FK202011430

PATIENT
  Age: 67 Year
  Sex: Female
  Weight: 53 kg

DRUGS (10)
  1. IRINOTECAN (MANUFACTURER UNKNOWN) [Suspect]
     Active Substance: IRINOTECAN
     Indication: COLORECTAL CANCER METASTATIC
     Dosage: PHARMACEUTICAL DOSE FORM (FREE TEXT): SOLUTION
     Route: 042
     Dates: start: 20200812, end: 20200909
  2. OXALIPLATIN (MANUFACTURER UNKNOWN) [Suspect]
     Active Substance: OXALIPLATIN
     Indication: COLORECTAL CANCER METASTATIC
     Route: 065
     Dates: start: 20200812, end: 20200909
  3. AVELUMAB [Suspect]
     Active Substance: AVELUMAB
     Indication: PRODUCT USED FOR UNKNOWN INDICATION
     Dosage: PHARMACEUTICAL DOSE FORM (FREE TEXT): SOLUTION
     Route: 042
     Dates: start: 20201006
  4. FLUOROURACIL. [Suspect]
     Active Substance: FLUOROURACIL
     Indication: PRODUCT USED FOR UNKNOWN INDICATION
     Dosage: PHARMACEUTICAL DOSE FORM (FREE TEXT): UNKNOWN
     Route: 042
     Dates: start: 20201006
  5. OMEPRAZOLE. [Concomitant]
     Active Substance: OMEPRAZOLE
     Indication: PRODUCT USED FOR UNKNOWN INDICATION
     Dosage: PHARMACEUTICAL DOSE FORM (FREE TEXT): TABLETS
     Route: 065
     Dates: start: 20200717
  6. IRINOTECAN (MANUFACTURER UNKNOWN) [Suspect]
     Active Substance: IRINOTECAN
     Indication: PRODUCT USED FOR UNKNOWN INDICATION
     Dosage: PHARMACEUTICAL DOSE FORM (FREE TEXT): SOLUTION
     Route: 042
     Dates: start: 20201006
  7. AVELUMAB [Suspect]
     Active Substance: AVELUMAB
     Indication: COLORECTAL CANCER METASTATIC
     Dosage: PHARMACEUTICAL DOSE FORM (FREE TEXT): SOLUTION
     Route: 042
     Dates: start: 20200812, end: 20200909
  8. FLUOROURACIL. [Suspect]
     Active Substance: FLUOROURACIL
     Indication: COLORECTAL CANCER METASTATIC
     Dosage: PHARMACEUTICAL DOSE FORM (FREE TEXT): UNKNOWN
     Route: 042
     Dates: start: 20200812, end: 20200909
  9. CETUXIMAB. [Suspect]
     Active Substance: CETUXIMAB
     Indication: COLORECTAL CANCER METASTATIC
     Dosage: PHARMACEUTICAL DOSE FORM (FREE TEXT): UNKNOWN
     Route: 042
     Dates: start: 20200812, end: 20200909
  10. CETUXIMAB. [Suspect]
     Active Substance: CETUXIMAB
     Indication: PRODUCT USED FOR UNKNOWN INDICATION
     Dosage: PHARMACEUTICAL DOSE FORM (FREE TEXT): UNKNOWN
     Route: 042
     Dates: start: 20201006

REACTIONS (4)
  - Hypokalaemia [Unknown]
  - Diarrhoea [Recovered/Resolved]
  - Hyponatraemia [Unknown]
  - Dehydration [Unknown]
